FAERS Safety Report 5518885-4 (Version None)
Quarter: 2007Q4

REPORT INFORMATION
  Report Type: 
  Country: None (occurrence: None)
  Receive Date: 20071114
  Receipt Date: 20071029
  Transmission Date: 20080405
  Serious: Yes (Other)
  Sender: FDA-Public Use
  Company Number: ENC200700189

PATIENT
  Age: 49 Year
  Sex: Female

DRUGS (1)
  1. ARGATROBAN [Suspect]
     Indication: THROMBOSIS PROPHYLAXIS
     Dosage: INTRAVENOUS
     Route: 042
     Dates: start: 20071023, end: 20071023

REACTIONS (2)
  - PROCEDURAL COMPLICATION [None]
  - THROMBOSIS IN DEVICE [None]
